FAERS Safety Report 5093520-0 (Version None)
Quarter: 2006Q3

REPORT INFORMATION
  Report Type: 
  Country: None (occurrence: None)
  Receive Date: 20060829
  Receipt Date: 20060818
  Transmission Date: 20061208
  Serious: Yes (Hospitalization)
  Sender: FDA-Public Use
  Company Number: T200600830

PATIENT
  Age: 52 Year
  Sex: Female

DRUGS (1)
  1. HEXABRIX [Suspect]
     Indication: SPINAL MYELOGRAM
     Dosage: SMALL AMOUNT, INTRATHECAL
     Route: 037
     Dates: start: 20060802, end: 20060802

REACTIONS (1)
  - WRONG DRUG ADMINISTERED [None]
